FAERS Safety Report 18424280 (Version 2)
Quarter: 2020Q4

REPORT INFORMATION
  Report Type: Spontaneous
  Country: BE (occurrence: BE)
  Receive Date: 20201025
  Receipt Date: 20201103
  Transmission Date: 20210114
  Serious: Yes (Hospitalization)
  Sender: FDA-Public Use
  Company Number: BE-ROCHE-2700541

PATIENT
  Age: 40 Year
  Sex: Female
  Weight: 72 kg

DRUGS (9)
  1. RIVOTRIL [Concomitant]
     Active Substance: CLONAZEPAM
     Dosage: 15 DROPS OND
  2. DAFALGAN [Concomitant]
     Active Substance: ACETAMINOPHEN
     Dosage: BEFORE EACH OCREVUS DOSE
  3. CETIRIZINE [Concomitant]
     Active Substance: CETIRIZINE HYDROCHLORIDE
     Dosage: BEFORE EACH OCREVUS DOSE
  4. MELIANE [Concomitant]
     Active Substance: ETHINYL ESTRADIOL\GESTODENE
     Dosage: OND 0.02 MG/0.075 MG
  5. OCREVUS [Suspect]
     Active Substance: OCRELIZUMAB
     Indication: RELAPSING-REMITTING MULTIPLE SCLEROSIS
     Dosage: 300 MG 2 UNITS (START DOSE)
     Route: 042
     Dates: start: 20200518, end: 20200604
  6. SOLU-MEDROL [Concomitant]
     Active Substance: METHYLPREDNISOLONE SODIUM SUCCINATE
     Dosage: BEFORE EACH OCREVUS DOSE
     Route: 042
  7. FAMPYRA [Concomitant]
     Active Substance: DALFAMPRIDINE
     Dosage: TWD
  8. D-CURE [Concomitant]
     Active Substance: CHOLECALCIFEROL
     Dosage: ONCE WEEKLY
  9. ZALDIAR [Concomitant]
     Active Substance: ACETAMINOPHEN\TRAMADOL HYDROCHLORIDE
     Dosage: IN CASE OF HEADACHE, 37.5 MG/325 MG

REACTIONS (6)
  - Underdose [Unknown]
  - Pneumonia [Recovered/Resolved with Sequelae]
  - Pulmonary infarction [Recovered/Resolved with Sequelae]
  - Dyspnoea [Unknown]
  - Muscular weakness [Unknown]
  - Pulmonary embolism [Recovered/Resolved with Sequelae]

NARRATIVE: CASE EVENT DATE: 20200604
